FAERS Safety Report 9424671 (Version 2)
Quarter: 2013Q3

REPORT INFORMATION
  Report Type: Spontaneous
  Country: US (occurrence: US)
  Receive Date: 20130729
  Receipt Date: 20130809
  Transmission Date: 20140515
  Serious: No
  Sender: FDA-Public Use
  Company Number: US-009507513-1307USA009797

PATIENT
  Sex: Female

DRUGS (1)
  1. TIMOPTIC XE [Suspect]
     Indication: PRODUCT USED FOR UNKNOWN INDICATION
     Dosage: 5 ML, UNK
     Route: 047

REACTIONS (2)
  - Foreign body sensation in eyes [Unknown]
  - Product physical issue [Unknown]
